FAERS Safety Report 7026876-X (Version None)
Quarter: 2010Q4

REPORT INFORMATION
  Report Type: 
  Country: None (occurrence: None)
  Receive Date: 20101004
  Receipt Date: 20100929
  Transmission Date: 20110411
  Serious: Yes (Hospitalization)
  Sender: FDA-Public Use
  Company Number: A0836272A

PATIENT
  Age: 56 Year
  Sex: Male
  Weight: 99.5 kg

DRUGS (5)
  1. AVANDIA [Suspect]
     Dosage: 4MG PER DAY
     Route: 048
     Dates: start: 20050706, end: 20080211
  2. VYTORIN [Concomitant]
  3. DIOVAN HCT [Concomitant]
  4. METFORMIN [Concomitant]
  5. NORVASC [Concomitant]

REACTIONS (4)
  - HYPERLIPIDAEMIA [None]
  - HYPERTENSION [None]
  - ISCHAEMIC CARDIOMYOPATHY [None]
  - MYOCARDIAL INFARCTION [None]
